FAERS Safety Report 8613666-7 (Version None)
Quarter: 2012Q3

REPORT INFORMATION
  Report Type: 
  Country: None (occurrence: None)
  Receive Date: 20120823
  Receipt Date: 20120809
  Transmission Date: 20120928
  Serious: Yes (Other)
  Sender: FDA-Public Use
  Company Number: US-009507513-1208USA004585

PATIENT

DRUGS (1)
  1. PROSCAR [Suspect]
     Dosage: 5 MG, UNK
     Route: 048
     Dates: start: 19920101

REACTIONS (3)
  - SEXUAL DYSFUNCTION [None]
  - PROSTATE CANCER [None]
  - COGNITIVE DISORDER [None]
